FAERS Safety Report 24122120 (Version 1)
Quarter: 2024Q3

REPORT INFORMATION
  Report Type: Report from Study
  Country: US (occurrence: US)
  Receive Date: 20240722
  Receipt Date: 20240722
  Transmission Date: 20241016
  Serious: Yes (Hospitalization, Other)
  Sender: APELLIS PHARMACEUTICALS
  Company Number: US-APELLIS PHARMACEUTICALS-APL-2023-002817

PATIENT

DRUGS (10)
  1. PEGCETACOPLAN [Suspect]
     Active Substance: PEGCETACOPLAN
     Indication: Paroxysmal nocturnal haemoglobinuria
     Dosage: 1080 MILLIGRAM, EVERY THREE DAY
     Route: 058
     Dates: start: 20220721
  2. PEGCETACOPLAN [Suspect]
     Active Substance: PEGCETACOPLAN
     Indication: Paroxysmal nocturnal haemoglobinuria
     Dosage: 1080 MILLIGRAM, EVERY THREE DAY
     Route: 058
     Dates: start: 20220721
  3. PEGCETACOPLAN [Suspect]
     Active Substance: PEGCETACOPLAN
     Indication: Paroxysmal nocturnal haemoglobinuria
     Dosage: 1080 MILLIGRAM, EVERY THREE DAY
     Route: 058
     Dates: start: 20220721
  4. REBLOZYL [Suspect]
     Active Substance: LUSPATERCEPT-AAMT
     Indication: Product used for unknown indication
     Dosage: UNK, EVERY THREE WEEK
  5. REBLOZYL [Suspect]
     Active Substance: LUSPATERCEPT-AAMT
     Dosage: UNK, EVERY 6 WEEKS
     Dates: end: 202401
  6. BENAZEPRIL [Concomitant]
     Active Substance: BENAZEPRIL HYDROCHLORIDE
     Indication: Product used for unknown indication
  7. FOLIC ACID [Concomitant]
     Active Substance: FOLIC ACID
     Indication: Product used for unknown indication
  8. ASPIRIN [Concomitant]
     Active Substance: ASPIRIN
     Indication: Product used for unknown indication
  9. PROCRIT [Concomitant]
     Active Substance: ERYTHROPOIETIN
     Indication: Product used for unknown indication
  10. PANTOPRAZOLE [Concomitant]
     Active Substance: PANTOPRAZOLE
     Indication: Product used for unknown indication
     Dosage: UNK

REACTIONS (29)
  - Gastrointestinal haemorrhage [Unknown]
  - Haemoglobin decreased [Unknown]
  - Myelofibrosis [Unknown]
  - Varices oesophageal [Unknown]
  - Fall [Unknown]
  - Leukopenia [Unknown]
  - Blood product transfusion dependent [Unknown]
  - Thrombocytopenia [Unknown]
  - Hepatic steatosis [Unknown]
  - Weight decreased [Recovered/Resolved]
  - Muscular weakness [Unknown]
  - Blood iron increased [Unknown]
  - Decreased appetite [Recovered/Resolved]
  - Nausea [Recovered/Resolved]
  - Splenomegaly [Unknown]
  - Gingival bleeding [Recovered/Resolved]
  - Haptoglobin increased [Unknown]
  - Serum ferritin increased [Unknown]
  - Cough [Recovered/Resolved]
  - Lethargy [Recovered/Resolved]
  - Pain in extremity [Recovered/Resolved]
  - Arthralgia [Recovered/Resolved]
  - Varices oesophageal [Unknown]
  - Hepatic cirrhosis [Unknown]
  - Portal hypertension [Unknown]
  - Haemoglobin decreased [Unknown]
  - Platelet count decreased [Unknown]
  - Hypersensitivity [Unknown]
  - Rash [Unknown]

NARRATIVE: CASE EVENT DATE: 20230801
